FAERS Safety Report 11311722 (Version 1)
Quarter: 2015Q3

REPORT INFORMATION
  Report Type: Spontaneous
  Country: US (occurrence: None)
  Receive Date: 20150724
  Receipt Date: 20150724
  Transmission Date: 20151125
  Serious: No
  Sender: FDA-Public Use
  Company Number: None

PATIENT
  Age: 54 Year
  Sex: Male

DRUGS (12)
  1. SENNA [Concomitant]
     Active Substance: SENNA LEAF\SENNOSIDES\SENNOSIDES A AND B
  2. ASPIRIN. [Concomitant]
     Active Substance: ASPIRIN
  3. RANITIDINE [Concomitant]
     Active Substance: RANITIDINE\RANITIDINE HYDROCHLORIDE
  4. BIVALIRUDIN. [Concomitant]
     Active Substance: BIVALIRUDIN
  5. MAALOX ANTACID [Concomitant]
     Active Substance: ALUMINUM HYDROXIDE\DIMETHICONE\MAGNESIUM HYDROXIDE
  6. FUROSEMIDE. [Concomitant]
     Active Substance: FUROSEMIDE
  7. SIMVASTATIN. [Concomitant]
     Active Substance: SIMVASTATIN
  8. NESIRITIDE [Suspect]
     Active Substance: NESIRITIDE
     Indication: CARDIAC FAILURE
     Dosage: 0.5 MCG/KG/MIN CONTINUOUS IV
     Route: 042
     Dates: start: 20150405, end: 20150405
  9. DOCUSATE [Concomitant]
     Active Substance: DOCUSATE
  10. CHLORHEXADINE [Concomitant]
     Active Substance: CHLORHEXIDINE
  11. INSULIN ASPART [Concomitant]
     Active Substance: INSULIN ASPART
  12. VANCOMYCIN [Concomitant]
     Active Substance: VANCOMYCIN

REACTIONS (3)
  - Infusion related reaction [None]
  - Hypotension [None]
  - Acute kidney injury [None]

NARRATIVE: CASE EVENT DATE: 20150405
